FAERS Safety Report 9696979 (Version 2)
Quarter: 2013Q4

REPORT INFORMATION
  Report Type: Spontaneous
  Country: US (occurrence: US)
  Receive Date: 20131119
  Receipt Date: 20131223
  Transmission Date: 20140711
  Serious: Yes (Death, Other)
  Sender: FDA-Public Use
  Company Number: US-GILEAD-2013-0087766

PATIENT
  Age: 87 Year
  Sex: Male
  Weight: 53.61 kg

DRUGS (1)
  1. RANEXA [Suspect]
     Indication: ANGINA PECTORIS
     Dosage: 500 MG, UNK
     Route: 048
     Dates: start: 20130128

REACTIONS (2)
  - Cardio-respiratory arrest [Fatal]
  - Arteriosclerosis [Fatal]
